APPROVED DRUG PRODUCT: IBUPROFEN
Active Ingredient: IBUPROFEN
Strength: 600MG
Dosage Form/Route: TABLET;ORAL
Application: A071125 | Product #001
Applicant: PUREPAC PHARMACEUTICAL CO
Approved: Sep 19, 1986 | RLD: No | RS: No | Type: DISCN